FAERS Safety Report 5037699-5 (Version None)
Quarter: 2006Q2

REPORT INFORMATION
  Report Type: 
  Country: None (occurrence: None)
  Receive Date: 20060627
  Receipt Date: 20060627
  Transmission Date: 20061013
  Serious: Yes (Other)
  Sender: FDA-Public Use
  Company Number: None

PATIENT
  Sex: Male
  Weight: 111.1313 kg

DRUGS (1)
  1. ROSUVASTATIN 10MG (ASTRAZENECA) [Suspect]
     Indication: DYSLIPIDAEMIA
     Dosage: 10 MG DAILY PO
     Route: 048
     Dates: start: 20060425, end: 20060522

REACTIONS (3)
  - ASTHENIA [None]
  - HEADACHE [None]
  - MYALGIA [None]
